FAERS Safety Report 6869102-4 (Version None)
Quarter: 2010Q3

REPORT INFORMATION
  Report Type: 
  Country: None (occurrence: None)
  Receive Date: 20100722
  Receipt Date: 20080702
  Transmission Date: 20110219
  Serious: Yes (Other)
  Sender: FDA-Public Use
  Company Number: US-PFIZER INC-2008056043

PATIENT
  Sex: Female
  Weight: 77.272 kg

DRUGS (10)
  1. CHANTIX [Suspect]
     Indication: SMOKING CESSATION THERAPY
     Route: 048
     Dates: start: 20080401
  2. LEXAPRO [Concomitant]
     Indication: DEPRESSION
  3. HYDROCODONE [Concomitant]
  4. SKELAXIN [Concomitant]
  5. FENTANYL [Concomitant]
  6. TRAZODONE [Concomitant]
  7. CELEBREX [Concomitant]
  8. PREVACID [Concomitant]
     Indication: GASTRIC ULCER
  9. IMITREX [Concomitant]
     Indication: MIGRAINE
  10. LYRICA [Concomitant]

REACTIONS (3)
  - DECREASED APPETITE [None]
  - DEPRESSION [None]
  - SUICIDAL IDEATION [None]
